FAERS Safety Report 11919159 (Version 1)
Quarter: 2016Q1

REPORT INFORMATION
  Report Type: Spontaneous
  Country: US (occurrence: None)
  Receive Date: 20160114
  Receipt Date: 20160114
  Transmission Date: 20160526
  Serious: No
  Sender: FDA-Public Use
  Company Number: None

PATIENT
  Age: 3 Year
  Sex: Male
  Weight: 17.24 kg

DRUGS (2)
  1. CHILDREN^S MULTI-SYMPTOM COLD + FEVER EQUATE [Suspect]
     Active Substance: ACETAMINOPHEN\DEXTROMETHORPHAN HYDROBROMIDE\GUAIFENESIN\PHENYLEPHRINE HYDROCHLORIDE
     Indication: COUGH
     Route: 048
     Dates: start: 20160110, end: 20160111
  2. CHILDREN^S MULTI-SYMPTOM COLD + FEVER EQUATE [Suspect]
     Active Substance: ACETAMINOPHEN\DEXTROMETHORPHAN HYDROBROMIDE\GUAIFENESIN\PHENYLEPHRINE HYDROCHLORIDE
     Indication: NASOPHARYNGITIS
     Route: 048
     Dates: start: 20160110, end: 20160111

REACTIONS (7)
  - Overdose [None]
  - Dyskinesia [None]
  - Tremor [None]
  - Drug administered to patient of inappropriate age [None]
  - Peripheral coldness [None]
  - Drug hypersensitivity [None]
  - Product formulation issue [None]

NARRATIVE: CASE EVENT DATE: 20160110
